FAERS Safety Report 8131747-1 (Version None)
Quarter: 2012Q1

REPORT INFORMATION
  Report Type: 
  Country: None (occurrence: None)
  Receive Date: 20120213
  Receipt Date: 20120208
  Transmission Date: 20120608
  Serious: Yes (Other)
  Sender: FDA-Public Use
  Company Number: AU-SANOFI-AVENTIS-2012SA008327

PATIENT
  Sex: Male

DRUGS (1)
  1. ARAVA [Suspect]
     Route: 065

REACTIONS (1)
  - PERICARDITIS [None]
